FAERS Safety Report 7533915-6 (Version None)
Quarter: 2011Q2

REPORT INFORMATION
  Report Type: 
  Country: None (occurrence: None)
  Receive Date: 20110608
  Receipt Date: 20060622
  Transmission Date: 20111010
  Serious: Yes (Other)
  Sender: FDA-Public Use
  Company Number: PHMT2006CA01409

PATIENT
  Sex: Female

DRUGS (12)
  1. ALTACE [Concomitant]
  2. LIPITOR [Concomitant]
  3. PREDNISONE [Concomitant]
  4. LEVOTHYROXINE SODIUM [Concomitant]
  5. TEMAZEPAM [Concomitant]
  6. INDAPAMIDE [Concomitant]
  7. OXYCET [Concomitant]
  8. TYLENOL-500 [Concomitant]
  9. ATENOLOL [Concomitant]
  10. NITROFURANTOIN [Concomitant]
  11. SANDOSTATIN LAR [Suspect]
     Indication: ACROMEGALY
     Dosage: 20 MG, QMO
     Dates: start: 20050609
  12. ATIVAN [Concomitant]

REACTIONS (2)
  - DYSPNOEA [None]
  - CHEST PAIN [None]
